FAERS Safety Report 23866386 (Version 2)
Quarter: 2024Q3

REPORT INFORMATION
  Report Type: Report from Study
  Country: BR (occurrence: BR)
  Receive Date: 20240517
  Receipt Date: 20240722
  Transmission Date: 20241016
  Serious: Yes (Other)
  Sender: NOVARTIS
  Company Number: BR-002147023-NVSC2024BR104215

PATIENT
  Sex: Male

DRUGS (1)
  1. COSENTYX [Suspect]
     Active Substance: SECUKINUMAB
     Indication: Psoriasis
     Dosage: 150 MG, QW (OTHER- 2 DOSES SUBCUTANEOUSLY IN THE WEEK 0,1,2,3 AND 4) (UNDER THE SKIN USUALLY BY INJE
     Route: 058

REACTIONS (5)
  - Immunosuppression [Unknown]
  - Psoriasis [Unknown]
  - Generalised oedema [Unknown]
  - Skin exfoliation [Unknown]
  - Product prescribing error [Unknown]
